FAERS Safety Report 16171965 (Version 2)
Quarter: 2020Q1

REPORT INFORMATION
  Report Type: Spontaneous
  Country: FR (occurrence: FR)
  Receive Date: 20190409
  Receipt Date: 20200103
  Transmission Date: 20200409
  Serious: Yes (Hospitalization, Other)
  Sender: FDA-Public Use
  Company Number: FR-AUROBINDO-AUR-APL-2019-018061

PATIENT
  Age: 26 Year
  Sex: Female

DRUGS (2)
  1. NABUCOX [Suspect]
     Active Substance: NABUMETONE
     Indication: TONSILLITIS
     Dosage: UNK
     Route: 048
     Dates: start: 20190301, end: 20190302
  2. AMOXICILLIN. [Suspect]
     Active Substance: AMOXICILLIN
     Indication: TONSILLITIS
     Dosage: UNK
     Route: 048
     Dates: start: 20190301, end: 20190302

REACTIONS (6)
  - Oedema [Recovered/Resolved]
  - Ocular hyperaemia [Recovered/Resolved]
  - Pain of skin [Recovered/Resolved]
  - Dermatitis exfoliative generalised [Recovered/Resolved]
  - Pruritus [Recovered/Resolved]
  - Purpura [Recovered/Resolved]

NARRATIVE: CASE EVENT DATE: 20190302
